FAERS Safety Report 10845824 (Version 1)
Quarter: 2015Q1

REPORT INFORMATION
  Report Type: Report from Study
  Country: US (occurrence: US)
  Receive Date: 20150220
  Receipt Date: 20150220
  Transmission Date: 20150721
  Serious: No
  Sender: FDA-Public Use
  Company Number: US-ABBVIE-14P-163-1308522-00

PATIENT
  Age: 39 Year
  Sex: Female
  Weight: 49.49 kg

DRUGS (22)
  1. ENZYMES [Concomitant]
     Indication: ENZYME SUPPLEMENTATION
     Dosage: 1 PILL
     Route: 048
     Dates: start: 20110921, end: 20120628
  2. TUMS [Concomitant]
     Active Substance: CALCIUM CARBONATE
     Indication: DYSPEPSIA
     Dosage: 3.5 PILLS
     Route: 048
     Dates: start: 20120425, end: 20120628
  3. HUMIRA [Suspect]
     Active Substance: ADALIMUMAB
     Indication: CROHN^S DISEASE
     Dosage: 2 MONTHS
     Route: 050
     Dates: start: 20110921, end: 20111222
  4. PROBIOTICS [Concomitant]
     Active Substance: PROBIOTICS NOS
     Indication: PRODUCT USED FOR UNKNOWN INDICATION
     Dosage: IN HOMEMADE YOGHURT
     Route: 048
     Dates: start: 20110921, end: 20120628
  5. ENZYMES [Concomitant]
     Indication: ENZYME SUPPLEMENTATION
     Dosage: 3 PILL
     Route: 048
     Dates: start: 20110921, end: 20120628
  6. NUTRITIONAL SUPPLEMENT [Concomitant]
     Active Substance: DIETARY SUPPLEMENT
     Indication: NUTRITIONAL SUPPLEMENTATION
     Dosage: 15 NUTRITION SUPPLEMENT; 2 SERVING
     Route: 048
     Dates: start: 20110921, end: 20120628
  7. TYLENOL [Concomitant]
     Active Substance: ACETAMINOPHEN
     Indication: OROPHARYNGEAL PAIN
     Dosage: 2 PILLS
     Route: 048
     Dates: start: 20120301, end: 20120303
  8. FOLIC ACID. [Concomitant]
     Active Substance: FOLIC ACID
     Indication: CONGENITAL ABNORMALITY PROPHYLAXIS
     Route: 048
     Dates: start: 20110921, end: 20120628
  9. IRON [Concomitant]
     Active Substance: IRON
     Indication: PRODUCT USED FOR UNKNOWN INDICATION
     Dosage: 1 PILL
     Route: 048
     Dates: start: 20110921, end: 20120628
  10. CLOMID [Concomitant]
     Active Substance: CLOMIPHENE CITRATE
     Route: 048
     Dates: start: 20110924, end: 20110928
  11. PRENATAL VITAMIN NOS [Concomitant]
     Indication: PRODUCT USED FOR UNKNOWN INDICATION
     Dosage: 1 PILL
     Route: 048
     Dates: start: 20110921, end: 20120628
  12. FIBER LAXATIVE/SUPPLEMENT [Concomitant]
     Indication: PRODUCT USED FOR UNKNOWN INDICATION
     Dosage: PSYLLIUM POWDER
     Route: 048
     Dates: start: 20110921, end: 20120628
  13. L-GLUTAMINE [Concomitant]
     Indication: AMINO ACID LEVEL
     Route: 048
     Dates: start: 20110921, end: 20120628
  14. HUMIRA [Suspect]
     Active Substance: ADALIMUMAB
     Dosage: 2 MONTHS
     Route: 050
     Dates: start: 20120119, end: 20120301
  15. FLU VACCINE NOS [Concomitant]
     Indication: PRODUCT USED FOR UNKNOWN INDICATION
     Dosage: 1 SHOT
     Route: 050
     Dates: start: 20111115, end: 20111115
  16. VITAMIN D [Concomitant]
     Active Substance: CHOLECALCIFEROL
     Indication: PRODUCT USED FOR UNKNOWN INDICATION
     Route: 048
     Dates: start: 20110921, end: 20120628
  17. VITAMIN B12 [Concomitant]
     Active Substance: CYANOCOBALAMIN
     Indication: PRODUCT USED FOR UNKNOWN INDICATION
     Route: 050
     Dates: start: 20110921, end: 20120628
  18. XYMOGEN IGG 2000 DF CAPSULES [Concomitant]
     Indication: NUTRITIONAL SUPPLEMENTATION
     Dosage: 1 TABLET
     Route: 048
     Dates: start: 20110921, end: 20120628
  19. DHA (DOCONEXENT) [Concomitant]
     Active Substance: DOCONEXENT
     Indication: PRODUCT USED FOR UNKNOWN INDICATION
     Dosage: FISH OIL WITH 250MG DHA
     Route: 048
     Dates: start: 20110921, end: 20120628
  20. CLOMID [Concomitant]
     Active Substance: CLOMIPHENE CITRATE
     Indication: OVULATION INDUCTION
     Route: 048
     Dates: start: 20110826, end: 20110830
  21. CALTRATE 600+D [Concomitant]
     Indication: PRODUCT USED FOR UNKNOWN INDICATION
     Dosage: 2 PILLS; 600MG CA AND 400 IU D
     Route: 048
     Dates: start: 20110921, end: 20120628
  22. EPA [Concomitant]
     Indication: PRODUCT USED FOR UNKNOWN INDICATION
     Dosage: FISH OIL WITH 500MG + EPA
     Route: 048
     Dates: start: 20110921, end: 20120628

REACTIONS (4)
  - Oropharyngeal pain [Recovered/Resolved]
  - Glucose tolerance test [Unknown]
  - Dyspepsia [Recovered/Resolved]
  - Respiratory tract infection [Unknown]

NARRATIVE: CASE EVENT DATE: 20120301
